FAERS Safety Report 11788891 (Version 1)
Quarter: 2015Q4

REPORT INFORMATION
  Report Type: Spontaneous
  Country: NL (occurrence: NL)
  Receive Date: 20151201
  Receipt Date: 20151201
  Transmission Date: 20160305
  Serious: Yes (Other)
  Sender: FDA-Public Use
  Company Number: NL-WATSON-2015-18444

PATIENT
  Age: 3 Year
  Sex: Female

DRUGS (2)
  1. HALOPERIDOL (UNKNOWN) [Suspect]
     Active Substance: HALOPERIDOL
     Dosage: 0.05 MG/KG, DAILY (ON DAYS 2-4)
     Route: 042
  2. HALOPERIDOL (UNKNOWN) [Suspect]
     Active Substance: HALOPERIDOL
     Indication: DELIRIUM
     Dosage: 0.1 MG/KG, DAILY (SINGLE STARTING DOSE)
     Route: 042

REACTIONS (3)
  - Oculogyric crisis [Recovered/Resolved]
  - Pyrexia [Recovered/Resolved]
  - Drooling [Recovered/Resolved]
